FAERS Safety Report 6447138-5 (Version None)
Quarter: 2009Q4

REPORT INFORMATION
  Report Type: 
  Country: None (occurrence: None)
  Receive Date: 20091119
  Receipt Date: 20091110
  Transmission Date: 20100525
  Serious: Yes (Hospitalization)
  Sender: FDA-Public Use
  Company Number: JP-ASTRAZENECA-2009SE10727

PATIENT
  Age: 64 Year
  Sex: Female
  Weight: 53 kg

DRUGS (9)
  1. OMEPRAL [Suspect]
     Indication: REFLUX OESOPHAGITIS
     Route: 048
     Dates: start: 20030922, end: 20090802
  2. LOXONIN [Suspect]
     Indication: NEURALGIA
     Route: 048
     Dates: start: 20030922, end: 20090802
  3. CONSTAN [Concomitant]
     Indication: AUTONOMIC NERVOUS SYSTEM IMBALANCE
     Route: 048
     Dates: start: 20030922, end: 20091102
  4. SELBEX [Concomitant]
     Indication: GASTRITIS EROSIVE
     Route: 048
     Dates: start: 20030922, end: 20091102
  5. MAINTATE [Concomitant]
     Indication: HYPERTENSION
     Route: 048
     Dates: start: 20070414, end: 20091102
  6. LAC-B [Concomitant]
     Indication: ENTEROCOLITIS
     Route: 048
     Dates: start: 20090713, end: 20090717
  7. LOPEMIN [Concomitant]
     Indication: DIARRHOEA
     Route: 048
     Dates: start: 20090716, end: 20090802
  8. PARIET [Concomitant]
     Indication: REFLUX OESOPHAGITIS
     Route: 048
     Dates: start: 20090803, end: 20090806
  9. GASTER D [Concomitant]
     Indication: REFLUX OESOPHAGITIS
     Route: 048
     Dates: start: 20090810, end: 20091102

REACTIONS (1)
  - COLITIS COLLAGENOUS [None]
